FAERS Safety Report 16003368 (Version 10)
Quarter: 2020Q2

REPORT INFORMATION
  Report Type: Report from Study
  Country: CA (occurrence: CA)
  Receive Date: 20190226
  Receipt Date: 20200520
  Transmission Date: 20200713
  Serious: Yes (Hospitalization, Other)
  Sender: FDA-Public Use
  Company Number: CA-ROCHE-2266485

PATIENT
  Age: 50 Year
  Sex: Male

DRUGS (23)
  1. PREDNISONE. [Concomitant]
     Active Substance: PREDNISONE
     Route: 048
     Dates: start: 201604
  2. BENADRYL [Concomitant]
     Active Substance: DIPHENHYDRAMINE HYDROCHLORIDE
     Indication: PREMEDICATION
     Route: 048
     Dates: start: 20190325
  3. ACETYLSALICYLIC ACID [Concomitant]
     Active Substance: ASPIRIN
     Route: 048
  4. ISOPTIN [Concomitant]
     Active Substance: VERAPAMIL HYDROCHLORIDE
  5. ACTONEL [Concomitant]
     Active Substance: RISEDRONATE SODIUM
  6. NAPROSYN [Concomitant]
     Active Substance: NAPROXEN
     Dosage: AS REQUIRED
     Route: 065
  7. RITUXAN [Suspect]
     Active Substance: RITUXIMAB
     Indication: PULMONARY FIBROSIS
     Route: 042
     Dates: start: 20190325
  8. CELLCEPT [Suspect]
     Active Substance: MYCOPHENOLATE MOFETIL\MYCOPHENOLATE MOFETIL HYDROCHLORIDE
     Indication: NECROTISING MYOSITIS
     Route: 048
     Dates: start: 201607
  9. CORTISONE [Concomitant]
     Active Substance: CORTISONE
  10. LYRICA [Concomitant]
     Active Substance: PREGABALIN
  11. SOLU-MEDROL [Concomitant]
     Active Substance: METHYLPREDNISOLONE SODIUM SUCCINATE
     Indication: PREMEDICATION
     Route: 042
     Dates: start: 20190325, end: 20191107
  12. SOLU-MEDROL [Concomitant]
     Active Substance: METHYLPREDNISOLONE SODIUM SUCCINATE
     Route: 042
     Dates: start: 20191120
  13. TYLENOL [Concomitant]
     Active Substance: ACETAMINOPHEN
     Indication: PREMEDICATION
     Route: 048
     Dates: start: 20190325
  14. METHYLPREDNISOLONE. [Concomitant]
     Active Substance: METHYLPREDNISOLONE
     Route: 048
  15. RITUXAN [Suspect]
     Active Substance: RITUXIMAB
     Indication: NECROTISING MYOSITIS
     Route: 042
     Dates: start: 20190408
  16. PREDNISONE. [Concomitant]
     Active Substance: PREDNISONE
     Route: 048
     Dates: start: 201811
  17. CLARITINE [Concomitant]
     Active Substance: LORATADINE
     Route: 048
  18. DEXILANT [Concomitant]
     Active Substance: DEXLANSOPRAZOLE
  19. CELLCEPT [Suspect]
     Active Substance: MYCOPHENOLATE MOFETIL\MYCOPHENOLATE MOFETIL HYDROCHLORIDE
     Indication: PULMONARY FIBROSIS
     Route: 065
     Dates: start: 2017
  20. DIPHENHYDRAMINE HCL [Concomitant]
     Active Substance: DIPHENHYDRAMINE HYDROCHLORIDE
     Indication: PREMEDICATION
     Route: 048
     Dates: start: 20190325
  21. ACETAMINOPHEN. [Concomitant]
     Active Substance: ACETAMINOPHEN
     Indication: PREMEDICATION
     Route: 048
     Dates: start: 20190325
  22. METHYLPREDNISOLONE. [Concomitant]
     Active Substance: METHYLPREDNISOLONE
     Indication: PREMEDICATION
     Route: 042
     Dates: start: 20190325
  23. ACETAMINOPHEN. [Concomitant]
     Active Substance: ACETAMINOPHEN
     Route: 048

REACTIONS (20)
  - Fatigue [Unknown]
  - Off label use [Unknown]
  - Oxygen saturation decreased [Unknown]
  - Cough [Not Recovered/Not Resolved]
  - Heart rate increased [Unknown]
  - Pneumonia [Recovering/Resolving]
  - Dyspnoea [Unknown]
  - Product use in unapproved indication [Unknown]
  - Blood pressure diastolic abnormal [Unknown]
  - Rhinitis [Unknown]
  - Restrictive pulmonary disease [Not Recovered/Not Resolved]
  - Blood pressure diastolic increased [Unknown]
  - Blood pressure increased [Unknown]
  - Overlap syndrome [Unknown]
  - Necrotising myositis [Unknown]
  - Asthenia [Unknown]
  - Epistaxis [Recovered/Resolved]
  - Bacterial infection [Unknown]
  - Infusion related reaction [Unknown]
  - Fibrosis [Unknown]

NARRATIVE: CASE EVENT DATE: 201811
